FAERS Safety Report 4447222-1 (Version None)
Quarter: 2004Q3

REPORT INFORMATION
  Report Type: 
  Country: None (occurrence: None)
  Receive Date: 20040908
  Receipt Date: 20040908
  Transmission Date: 20050211
  Serious: Yes (Other)
  Sender: FDA-Public Use
  Company Number: None

PATIENT
  Age: 45 Year
  Sex: Female
  Weight: 120.2032 kg

DRUGS (1)
  1. ZOLOFT [Suspect]
     Indication: DEPRESSION
     Dosage: 1   PER DAY   ORAL
     Route: 048
     Dates: start: 19950105, end: 20040824

REACTIONS (5)
  - AGGRESSION [None]
  - AGITATION [None]
  - DIZZINESS [None]
  - HYPERACUSIS [None]
  - PARAESTHESIA [None]
